FAERS Safety Report 5809390-6 (Version None)
Quarter: 2008Q3

REPORT INFORMATION
  Report Type: 
  Country: None (occurrence: None)
  Receive Date: 20080714
  Receipt Date: 20080711
  Transmission Date: 20090109
  Serious: Yes (Death, Hospitalization)
  Sender: FDA-Public Use
  Company Number: PHEH2006US02235

PATIENT
  Sex: Male
  Weight: 78.911 kg

DRUGS (20)
  1. EXJADE [Suspect]
     Indication: BLOOD IRON INCREASED
     Dosage: 500 MG, TID
     Route: 048
     Dates: start: 20060126
  2. EXJADE [Suspect]
     Indication: MYELODYSPLASTIC SYNDROME
     Dosage: 500 MG, BID
     Route: 048
  3. EXJADE [Suspect]
     Dosage: 500 MG, QD
     Route: 048
     Dates: end: 20060209
  4. DIGITEK [Concomitant]
  5. METFORMIN [Concomitant]
  6. LISINOPRIL [Concomitant]
  7. PANTOPRAZOLE SODIUM [Concomitant]
  8. LASIX [Concomitant]
  9. COREG [Concomitant]
  10. INSULIN [Concomitant]
  11. AMIODARONE HCL [Concomitant]
  12. CEFTRIAXONE [Concomitant]
  13. METOLAZONE [Concomitant]
  14. OXYGEN [Concomitant]
  15. GLYBURIDE [Concomitant]
  16. COMPAZINE [Concomitant]
  17. PROTONIX [Concomitant]
  18. LORAZEPAM [Concomitant]
  19. ALLOPURINOL [Concomitant]
  20. KLOR-CON [Concomitant]

REACTIONS (28)
  - BLOOD ALBUMIN DECREASED [None]
  - BLOOD BILIRUBIN INCREASED [None]
  - BLOOD CREATININE INCREASED [None]
  - BLOOD GLUCOSE ABNORMAL [None]
  - BLOOD UREA INCREASED [None]
  - BLOOD URINE PRESENT [None]
  - BRAIN NATRIURETIC PEPTIDE ABNORMAL [None]
  - CARDIAC FAILURE CONGESTIVE [None]
  - DEHYDRATION [None]
  - DIARRHOEA [None]
  - DYSPNOEA [None]
  - FACE OEDEMA [None]
  - FATIGUE [None]
  - HAEMATOCRIT DECREASED [None]
  - HAEMOGLOBIN DECREASED [None]
  - HYPERKALAEMIA [None]
  - METABOLIC ACIDOSIS [None]
  - MUSCULAR WEAKNESS [None]
  - MYELODYSPLASTIC SYNDROME [None]
  - NAUSEA [None]
  - PLATELET COUNT DECREASED [None]
  - PROTEIN URINE PRESENT [None]
  - RASH [None]
  - RED BLOOD CELL COUNT DECREASED [None]
  - RENAL FAILURE [None]
  - URINE OUTPUT DECREASED [None]
  - VOMITING [None]
  - WHITE BLOOD CELL COUNT INCREASED [None]
